FAERS Safety Report 6791378-2 (Version None)
Quarter: 2010Q2

REPORT INFORMATION
  Report Type: 
  Country: None (occurrence: None)
  Receive Date: 20100621
  Receipt Date: 20100611
  Transmission Date: 20101027
  Serious: Yes (Hospitalization)
  Sender: FDA-Public Use
  Company Number: 2010SP027324

PATIENT
  Age: 46 Year
  Sex: Male

DRUGS (11)
  1. MIRTAZAPINE [Suspect]
     Indication: DEPRESSION
     Dosage: PO; 30 MG; QD; PO
     Route: 048
     Dates: start: 20100330, end: 20100423
  2. MIRTAZAPINE [Suspect]
     Indication: DEPRESSION
     Dosage: PO; 30 MG; QD; PO
     Route: 048
     Dates: start: 20100301
  3. QUETIAPINE FUMARATE [Concomitant]
  4. PAROXETINE [Concomitant]
  5. HYDROCHLORIDE HYDRATE [Concomitant]
  6. AMOXAPINE [Concomitant]
  7. ZOLPIDEM TARTRATE [Concomitant]
  8. TRIAZOLAM [Concomitant]
  9. BROTIZOLAM [Concomitant]
  10. SERTRALINE HYDROCHLORIDE [Concomitant]
  11. CHLORPROMAZINE HCL [Concomitant]

REACTIONS (5)
  - ASCITES [None]
  - INSOMNIA [None]
  - OEDEMA PERIPHERAL [None]
  - PROTEIN-LOSING GASTROENTEROPATHY [None]
  - WEIGHT INCREASED [None]
